FAERS Safety Report 6928267-6 (Version None)
Quarter: 2010Q3

REPORT INFORMATION
  Report Type: 
  Country: None (occurrence: None)
  Receive Date: 20100817
  Receipt Date: 20100809
  Transmission Date: 20110219
  Serious: Yes (Hospitalization)
  Sender: FDA-Public Use
  Company Number: BR-ROCHE-720096

PATIENT
  Sex: Male

DRUGS (3)
  1. MYCOPHENOLATE MOFETIL [Suspect]
     Route: 065
     Dates: start: 20100210
  2. BELATACEPT [Suspect]
     Dosage: FREQUENCY: CYCLICAL; DOSE BLINDED; FORM PER PROTOCOL
     Route: 042
     Dates: start: 20070415
  3. PREDNISONE [Suspect]
     Route: 065
     Dates: start: 20080319

REACTIONS (1)
  - ACUTE MYOCARDIAL INFARCTION [None]
